FAERS Safety Report 10674002 (Version 1)
Quarter: 2014Q4

REPORT INFORMATION
  Report Type: Spontaneous
  Country: FR (occurrence: None)
  Receive Date: 20141222
  Receipt Date: 20141222
  Transmission Date: 20150529
  Serious: Yes (Hospitalization)
  Sender: FDA-Public Use
  Company Number: 2014-FR-016251

PATIENT
  Age: 2 Year
  Sex: Male
  Weight: 11.6 kg

DRUGS (2)
  1. ERWINASE [Suspect]
     Active Substance: ASPARAGINASE ERWINIA CHRYSANTHEMI
     Indication: ACUTE LYMPHOCYTIC LEUKAEMIA
     Dates: start: 20141023, end: 20141023
  2. ONCOVIN [Concomitant]
     Active Substance: VINCRISTINE SULFATE

REACTIONS (4)
  - Oedema [None]
  - Urticaria [None]
  - Hypoxia [None]
  - Vomiting [None]

NARRATIVE: CASE EVENT DATE: 20141023
